FAERS Safety Report 5471031-8 (Version None)
Quarter: 2007Q3

REPORT INFORMATION
  Report Type: 
  Country: None (occurrence: None)
  Receive Date: 20070928
  Receipt Date: 20070917
  Transmission Date: 20080115
  Serious: Yes (Death, Other)
  Sender: FDA-Public Use
  Company Number: B0488467A

PATIENT
  Age: 57 Year
  Sex: Male

DRUGS (2)
  1. LAMIVUDINE [Suspect]
     Route: 065
  2. ADEFOVIR DIPIVOXIL KIT [Suspect]
     Route: 065

REACTIONS (4)
  - ACUTE HEPATIC FAILURE [None]
  - DRUG INEFFECTIVE [None]
  - FUNGAL INFECTION [None]
  - HEPATITIS B [None]
